FAERS Safety Report 21357338 (Version 2)
Quarter: 2022Q4

REPORT INFORMATION
  Report Type: Spontaneous
  Country: IR (occurrence: None)
  Receive Date: 20220921
  Receipt Date: 20221027
  Transmission Date: 20230113
  Serious: Yes (Hospitalization, Other)
  Sender: FDA-Public Use
  Company Number: IR-Unichem Pharmaceuticals (USA) Inc-UCM202209-000961

PATIENT
  Age: 30 Year
  Sex: Female

DRUGS (3)
  1. METRONIDAZOLE [Suspect]
     Active Substance: METRONIDAZOLE
     Indication: Postoperative wound infection
     Route: 042
  2. CEFAZOLIN [Concomitant]
     Active Substance: CEFAZOLIN
     Indication: Postoperative wound infection
     Route: 042
  3. GENTAMICIN [Concomitant]
     Active Substance: GENTAMICIN
     Indication: Postoperative wound infection
     Route: 030

REACTIONS (1)
  - Toxic leukoencephalopathy [Unknown]
